FAERS Safety Report 4418568-8 (Version None)
Quarter: 2004Q3

REPORT INFORMATION
  Report Type: 
  Country: None (occurrence: None)
  Receive Date: 20040809
  Receipt Date: 20000320
  Transmission Date: 20050211
  Serious: Yes (Other)
  Sender: FDA-Public Use
  Company Number: US-GLAXOSMITHKLINE-A0323376A

PATIENT
  Age: 27 Year
  Sex: Female
  Weight: 150 kg

DRUGS (2)
  1. PAXIL [Suspect]
     Indication: ANXIETY
     Route: 048
     Dates: start: 19950101, end: 20000315
  2. ANTI-HISTAMINE TAB [Concomitant]

REACTIONS (12)
  - CHILLS [None]
  - DIZZINESS [None]
  - DRUG WITHDRAWAL SYNDROME [None]
  - ERYTHEMA [None]
  - FATIGUE [None]
  - FEELING COLD [None]
  - FEELING HOT [None]
  - HYPERHIDROSIS [None]
  - INAPPROPRIATE AFFECT [None]
  - LOSS OF LIBIDO [None]
  - PAIN [None]
  - VOMITING [None]
